FAERS Safety Report 4386916-3 (Version None)
Quarter: 2004Q2

REPORT INFORMATION
  Report Type: 
  Country: None (occurrence: None)
  Receive Date: 20040623
  Receipt Date: 20040614
  Transmission Date: 20050107
  Serious: Yes (Hospitalization)
  Sender: FDA-Public Use
  Company Number: HQWYE467416JUN04

PATIENT
  Age: 8 Year
  Sex: Female
  Weight: 23 kg

DRUGS (8)
  1. RAPAMUNE [Suspect]
     Indication: PROPHYLAXIS AGAINST TRANSPLANT REJECTION
     Dosage: 4 MG 2X PER 1 DAY, ORAL
     Route: 048
     Dates: start: 20020307
  2. ENALAPRIL MALEATE [Concomitant]
  3. PROGRAF [Concomitant]
  4. PREDNISONE TAB [Concomitant]
  5. LIPITOR [Concomitant]
  6. ZANTAC [Concomitant]
  7. NORVASC [Concomitant]
  8. INSULIN [Concomitant]

REACTIONS (4)
  - BLOOD CREATININE INCREASED [None]
  - CLOSTRIDIUM COLITIS [None]
  - DEHYDRATION [None]
  - HAEMATOCRIT DECREASED [None]
